FAERS Safety Report 12773988 (Version 2)
Quarter: 2023Q4

REPORT INFORMATION
  Report Type: Spontaneous
  Country: IT (occurrence: IT)
  Receive Date: 20160923
  Receipt Date: 20231222
  Transmission Date: 20240110
  Serious: Yes (Hospitalization, Other)
  Sender: FDA-Public Use
  Company Number: IT-ACCORD-044231

PATIENT
  Age: 60 Year
  Sex: Male

DRUGS (6)
  1. METHOTREXATE [Suspect]
     Active Substance: METHOTREXATE
     Indication: Rheumatoid arthritis
  2. BISOPROLOL [Suspect]
     Active Substance: BISOPROLOL\BISOPROLOL FUMARATE
     Indication: Hypertension
  3. CERTOLIZUMAB PEGOL [Suspect]
     Active Substance: CERTOLIZUMAB PEGOL
     Indication: Rheumatoid arthritis
     Dosage: EVERY OTHER WEEK
     Dates: start: 201211, end: 201405
  4. PREDNISONE [Concomitant]
     Active Substance: PREDNISONE
     Indication: Rheumatoid arthritis
  5. ENALAPRIL\HYDROCHLOROTHIAZIDE [Concomitant]
     Active Substance: ENALAPRIL\HYDROCHLOROTHIAZIDE
     Indication: Hypertension
     Dosage: 20/12.5 MG
  6. LACIDIPINE [Concomitant]
     Active Substance: LACIDIPINE
     Indication: Hypertension

REACTIONS (2)
  - Bradycardia [Unknown]
  - Atrial fibrillation [Not Recovered/Not Resolved]

NARRATIVE: CASE EVENT DATE: 20131001
